FAERS Safety Report 5671258-6 (Version None)
Quarter: 2008Q1

REPORT INFORMATION
  Report Type: 
  Country: None (occurrence: None)
  Receive Date: 20080318
  Receipt Date: 20080310
  Transmission Date: 20080703
  Serious: Yes (Other)
  Sender: FDA-Public Use
  Company Number: US-PFIZER INC-2008012146

PATIENT
  Sex: Male
  Weight: 73.9 kg

DRUGS (2)
  1. DETROL LA [Suspect]
     Indication: URINARY INCONTINENCE
  2. VITAMINS [Concomitant]

REACTIONS (2)
  - HEART RATE ABNORMAL [None]
  - URINARY INCONTINENCE [None]
